FAERS Safety Report 23027441 (Version 2)
Quarter: 2024Q1

REPORT INFORMATION
  Report Type: Report from Study
  Country: CA (occurrence: None)
  Receive Date: 20231004
  Receipt Date: 20240125
  Transmission Date: 20240409
  Serious: Yes (Other)
  Sender: FDA-Public Use
  Company Number: CA-PFIZER INC-202300312948

PATIENT
  Age: 71 Year
  Sex: Female

DRUGS (5)
  1. METHOTREXATE [Suspect]
     Active Substance: METHOTREXATE
     Indication: Product used for unknown indication
  2. METHOTREXATE [Suspect]
     Active Substance: METHOTREXATE
  3. ERELZI [Suspect]
     Active Substance: ETANERCEPT-SZZS
     Indication: Rheumatoid arthritis
  4. ERELZI [Suspect]
     Active Substance: ETANERCEPT-SZZS
  5. ERELZI [Suspect]
     Active Substance: ETANERCEPT-SZZS

REACTIONS (10)
  - Therapeutic product effect incomplete [Recovering/Resolving]
  - Aphthous ulcer [Recovering/Resolving]
  - Blood pressure systolic increased [Recovering/Resolving]
  - Heart rate increased [Recovering/Resolving]
  - Hydronephrosis [Recovering/Resolving]
  - Nephrolithiasis [Recovering/Resolving]
  - Norovirus infection [Recovering/Resolving]
  - Oral mucosal eruption [Recovering/Resolving]
  - Staphylococcal infection [Recovering/Resolving]
  - Alopecia [Recovering/Resolving]
